FAERS Safety Report 20700456 (Version 1)
Quarter: 2022Q2

REPORT INFORMATION
  Report Type: Spontaneous
  Country: US (occurrence: None)
  Receive Date: 20220410
  Receipt Date: 20220410
  Transmission Date: 20220721
  Serious: Yes (Disabling)
  Sender: FDA-Public Use
  Company Number: None

PATIENT
  Age: 66 Year
  Sex: Female
  Weight: 72 kg

DRUGS (7)
  1. CIPROFLOXACIN [Suspect]
     Active Substance: CIPROFLOXACIN
     Indication: Urinary tract infection
     Dosage: OTHER QUANTITY : 1 TABLET(S);?FREQUENCY : EVERY 4 HOURS;?
     Route: 048
     Dates: start: 20201015, end: 20201019
  2. OXYCODONE-FIBRO [Concomitant]
  3. CIPRO MIRTAZIPINE [Concomitant]
  4. HERBALS\MITRAGYNINE [Concomitant]
     Active Substance: HERBALS\MITRAGYNINE
  5. TYLENOL [Concomitant]
     Active Substance: ACETAMINOPHEN
  6. MELATONIN [Concomitant]
     Active Substance: MELATONIN
  7. IBUPROFEN [Concomitant]
     Active Substance: IBUPROFEN

REACTIONS (14)
  - Asthenia [None]
  - Dizziness [None]
  - Pain [None]
  - Depression [None]
  - Drug interaction [None]
  - Product use issue [None]
  - Bedridden [None]
  - Disability [None]
  - Insomnia [None]
  - Impaired quality of life [None]
  - Neuropathy peripheral [None]
  - Cognitive disorder [None]
  - Dyspnoea [None]
  - Balance disorder [None]

NARRATIVE: CASE EVENT DATE: 20201015
